FAERS Safety Report 25264157 (Version 1)
Quarter: 2025Q2

REPORT INFORMATION
  Report Type: Spontaneous
  Country: US (occurrence: None)
  Receive Date: 20250502
  Receipt Date: 20250502
  Transmission Date: 20250717
  Serious: Yes (Other)
  Sender: FDA-CTU
  Company Number: None

PATIENT
  Age: 66 Year
  Sex: Female
  Weight: 40.5 kg

DRUGS (6)
  1. LEQVIO [Suspect]
     Active Substance: INCLISIRAN SODIUM
     Indication: Blood cholesterol increased
     Route: 030
     Dates: start: 20250407
  2. CELEBREX [Concomitant]
     Active Substance: CELECOXIB
  3. Clariten Pepcid Magnesium [Concomitant]
  4. VITAMIN D [Concomitant]
     Active Substance: VITAMIN D NOS
  5. NM-6603 [Concomitant]
     Active Substance: NM-6603
  6. folate Tylenol [Concomitant]

REACTIONS (15)
  - Musculoskeletal stiffness [None]
  - Arthralgia [None]
  - Muscle spasms [None]
  - Muscle spasms [None]
  - Nausea [None]
  - Diarrhoea [None]
  - Headache [None]
  - Arthralgia [None]
  - Pain in extremity [None]
  - Sleep disorder [None]
  - Fatigue [None]
  - Lethargy [None]
  - Influenza like illness [None]
  - Arthralgia [None]
  - Myalgia [None]

NARRATIVE: CASE EVENT DATE: 20250407
